FAERS Safety Report 26137677 (Version 1)
Quarter: 2025Q4

REPORT INFORMATION
  Report Type: Report from Study
  Country: GB (occurrence: GB)
  Receive Date: 20251209
  Receipt Date: 20251209
  Transmission Date: 20260118
  Serious: Yes (Other)
  Sender: ABBVIE
  Company Number: GB-ABBVIE-6580604

PATIENT
  Sex: Female

DRUGS (1)
  1. SKYRIZI [Suspect]
     Active Substance: RISANKIZUMAB-RZAA
     Indication: Crohn^s disease
     Dosage: 360MG/2.4ML SOLUTION FOR INJECTION CARTRIDGE ON-BODY DEVICE, DOSE: 1.00 EA. DOSE FORM: SOLUTION F...
     Route: 058
     Dates: start: 20240710

REACTIONS (1)
  - Hip arthroplasty [Unknown]
